FAERS Safety Report 7261428-8 (Version None)
Quarter: 2011Q1

REPORT INFORMATION
  Report Type: 
  Country: None (occurrence: None)
  Receive Date: 20110130
  Receipt Date: 20100916
  Transmission Date: 20110831
  Serious: No
  Sender: FDA-Public Use
  Company Number: US-ABBOTT-10P-163-0672235-00

PATIENT
  Sex: Male
  Weight: 64.922 kg

DRUGS (2)
  1. HUMIRA [Suspect]
     Indication: COLITIS ULCERATIVE
     Dates: start: 20100201, end: 20100903
  2. HUMIRA [Suspect]
     Dosage: 80 MG
     Dates: start: 20100903

REACTIONS (5)
  - ACNE [None]
  - DRUG INEFFECTIVE [None]
  - ARTHRALGIA [None]
  - DIARRHOEA [None]
  - FOLLICULITIS [None]
